FAERS Safety Report 4725546-8 (Version None)
Quarter: 2005Q3

REPORT INFORMATION
  Report Type: 
  Country: None (occurrence: None)
  Receive Date: 20050727
  Receipt Date: 20050704
  Transmission Date: 20060218
  Serious: Yes (Death)
  Sender: FDA-Public Use
  Company Number: GB-BOEHRINGER INGELHEIM PHARMACEUTICALS, INC.-2005-UK-01206UK

PATIENT
  Sex: Male

DRUGS (12)
  1. SPIRIVA [Suspect]
     Dosage: 1 DOSE ONCE DAILY
     Route: 055
  2. COMBIVENT [Suspect]
     Dosage: 2.5ML 4 TIMES A DAY
  3. SERETIDE 500 ACCUHALER [Suspect]
     Dosage: 1 DOSE TWICE DAILY
     Route: 055
  4. STERI-NEB SALINE [Suspect]
     Dosage: 0.9% SOLUTION, 2.5ML AMPOULE, USE 1 AS DIRECTED
  5. PREDNISOLONE [Suspect]
     Dosage: 6 DAILY
  6. AMLODIPINE [Suspect]
     Dosage: 2 TABLETS DAILY
  7. CIPROFLOXACIN [Suspect]
     Dosage: 1 TWICE DAILY
  8. TRIMETHOPRIM [Suspect]
     Dosage: 1 TWICE DAILY
  9. FUROSEMIDE [Suspect]
     Dosage: 1 TABLET EACH MORNING
  10. INSTILLAGEL [Suspect]
     Dosage: 2% W/V 11 ML SYRINGE
  11. CLOTRIMAZOLE [Suspect]
     Dosage: 1% APPLIED 2-3 TIMES A DAY
  12. DOUBLEBASE GEL [Suspect]
     Dosage: AS NEEDED

REACTIONS (5)
  - CARDIAC FAILURE CONGESTIVE [None]
  - CHRONIC OBSTRUCTIVE PULMONARY DISEASE [None]
  - CYSTITIS [None]
  - DIZZINESS [None]
  - SUDDEN CARDIAC DEATH [None]
